FAERS Safety Report 12360511 (Version 7)
Quarter: 2020Q4

REPORT INFORMATION
  Report Type: Report from Study
  Country: CA (occurrence: CA)
  Receive Date: 20160512
  Receipt Date: 20201021
  Transmission Date: 20210113
  Serious: Yes (Other)
  Sender: FDA-Public Use
  Company Number: PHHY2014CA061207

PATIENT
  Age: 74 Year
  Sex: Male

DRUGS (8)
  1. SANDOSTATIN [Suspect]
     Active Substance: OCTREOTIDE ACETATE
  2. SANDOSTATIN LAR DEPOT [Suspect]
     Active Substance: OCTREOTIDE ACETATE
  3. METFORMIN [Suspect]
     Active Substance: METFORMIN HYDROCHLORIDE
     Indication: DIABETES MELLITUS
     Dosage: 500 MG, BID
     Route: 048
     Dates: start: 20180910
  4. SANDOSTATIN LAR DEPOT [Suspect]
     Active Substance: OCTREOTIDE ACETATE
     Indication: PANCREATIC NEUROENDOCRINE TUMOUR
     Dosage: UNK
     Route: 030
     Dates: start: 20140421
  5. SANDOSTATIN LAR DEPOT [Suspect]
     Active Substance: OCTREOTIDE ACETATE
     Dosage: 20 MG, QMO (EVERY 4 WEEKS)
     Route: 030
     Dates: start: 20140515
  6. LORAZEPAM. [Concomitant]
     Active Substance: LORAZEPAM
     Indication: PRODUCT USED FOR UNKNOWN INDICATION
     Route: 065
  7. SANDOSTATIN [Suspect]
     Active Substance: OCTREOTIDE ACETATE
     Indication: PANCREATIC NEUROENDOCRINE TUMOUR
     Dosage: 100 UG, TID
     Route: 058
     Dates: start: 20140406, end: 20140427
  8. SANDOSTATIN [Suspect]
     Active Substance: OCTREOTIDE ACETATE

REACTIONS (11)
  - Injection site haemorrhage [Unknown]
  - Ear infection [Unknown]
  - Fatigue [Unknown]
  - Influenza [Unknown]
  - Mass [Unknown]
  - Blood pressure increased [Unknown]
  - Needle issue [Unknown]
  - Bradycardia [Recovered/Resolved]
  - Asthenia [Unknown]
  - Diabetes mellitus [Unknown]
  - Ear pain [Unknown]

NARRATIVE: CASE EVENT DATE: 20140515
